FAERS Safety Report 7237673-4 (Version None)
Quarter: 2011Q1

REPORT INFORMATION
  Report Type: 
  Country: None (occurrence: None)
  Receive Date: 20110121
  Receipt Date: 20110111
  Transmission Date: 20110831
  Serious: Yes (Death, Other)
  Sender: FDA-Public Use
  Company Number: SE-BAXTER-2010BH030179

PATIENT
  Age: 64 Year
  Sex: Female

DRUGS (5)
  1. PHYSIOSOL IN PLASTIC CONTAINER [Concomitant]
     Indication: PERITONEAL DIALYSIS
     Route: 033
  2. EXTRANEAL [Suspect]
     Indication: PERITONEAL DIALYSIS
     Route: 033
  3. ACTIVASE [Suspect]
     Indication: ANGIOPLASTY
     Route: 065
     Dates: start: 20101222, end: 20101222
  4. ACTIVASE [Suspect]
     Indication: POOR PERIPHERAL CIRCULATION
     Route: 065
     Dates: start: 20101222, end: 20101222
  5. EXTRANEAL [Suspect]
     Indication: HYPERTENSION
     Route: 033

REACTIONS (2)
  - HAEMORRHAGE [None]
  - PERITONITIS BACTERIAL [None]
